FAERS Safety Report 6488703-9 (Version None)
Quarter: 2009Q4

REPORT INFORMATION
  Report Type: 
  Country: None (occurrence: None)
  Receive Date: 20091210
  Receipt Date: 20090925
  Transmission Date: 20100525
  Serious: No
  Sender: FDA-Public Use
  Company Number: US-AMGEN-KDL364144

PATIENT
  Sex: Female

DRUGS (6)
  1. ENBREL [Suspect]
     Indication: PSORIASIS
     Route: 058
     Dates: start: 20080910, end: 20081225
  2. AMLODIPINE [Concomitant]
  3. OLMESARTAN [Concomitant]
  4. UNSPECIFIED ANTIHYPERTENSIVE AGENT [Concomitant]
  5. LASIX [Concomitant]
  6. SYNTHROID [Concomitant]

REACTIONS (8)
  - BLOOD PRESSURE INCREASED [None]
  - FLANK PAIN [None]
  - HERPES ZOSTER [None]
  - JOINT EFFUSION [None]
  - ONYCHOMYCOSIS [None]
  - OSTEOPOROSIS [None]
  - PNEUMONIA [None]
  - WALKING AID USER [None]
